FAERS Safety Report 23666737 (Version 1)
Quarter: 2024Q1

REPORT INFORMATION
  Report Type: Spontaneous
  Country: CN (occurrence: CN)
  Receive Date: 20240325
  Receipt Date: 20240325
  Transmission Date: 20240410
  Serious: Yes (Other)
  Sender: FDA-Public Use
  Company Number: None

PATIENT
  Age: 52 Year
  Sex: Female
  Weight: 52.5 kg

DRUGS (6)
  1. CYCLOPHOSPHAMIDE [Suspect]
     Active Substance: CYCLOPHOSPHAMIDE
     Indication: Breast cancer female
     Dosage: 900 MG, ONE TIME IN ONE DAY, DILUTED WITH 0.9% SODIUM CHLORIDE 100ML, INFUSED WITH 5ML
     Route: 041
     Dates: start: 20240216, end: 20240216
  2. CYCLOPHOSPHAMIDE [Suspect]
     Active Substance: CYCLOPHOSPHAMIDE
     Dosage: 900 MG, ONE TIME IN ONE DAY, DILUTED WITH 0.9% SODIUM CHLORIDE 100ML, DOSE RE-INTRODUCED, START TIME
     Route: 041
     Dates: start: 20240216, end: 20240216
  3. SODIUM CHLORIDE [Suspect]
     Active Substance: SODIUM CHLORIDE
     Indication: Medication dilution
     Dosage: 0.9%,100 ML INJECTION, ONE TIME IN ONE DAY, USED TO DILUTE CYCLOPHOSPHAMIDE 900 MG, INFUSED WITH 5 M
     Route: 041
     Dates: start: 20240216, end: 20240216
  4. SODIUM CHLORIDE [Suspect]
     Active Substance: SODIUM CHLORIDE
     Dosage: 0.9%,100 ML INJECTION, ONE TIME IN ONE DAY, USED TO DILUTE CYCLOPHOSPHAMIDE 900 MG, DOSE RE-INTRODUC
     Route: 041
     Dates: start: 20240216, end: 20240216
  5. DEXTROSE [Suspect]
     Active Substance: DEXTROSE\DEXTROSE MONOHYDRATE
     Indication: Medication dilution
     Dosage: 5%, 250 ML INJECTION, ONE TIME IN ONE DAY,USED TO DILUTE 54MG OF DOXORUBICIN HYDROCHLORIDE LIPOSOME
     Route: 041
     Dates: start: 20240216, end: 20240216
  6. DOXORUBICIN HYDROCHLORIDE [Suspect]
     Active Substance: DOXORUBICIN HYDROCHLORIDE
     Indication: Breast cancer female
     Dosage: (SELF PREPARED) 54 MG, ONE TIME IN ONE DAY,DILUTED WITH 5% GLUCOSE 250 ML
     Route: 041
     Dates: start: 20240216, end: 20240216

REACTIONS (2)
  - Chest discomfort [Recovering/Resolving]
  - Dyspnoea [Recovering/Resolving]

NARRATIVE: CASE EVENT DATE: 20240216
